FAERS Safety Report 22371031 (Version 1)
Quarter: 2023Q2

REPORT INFORMATION
  Report Type: Spontaneous
  Country: US (occurrence: US)
  Receive Date: 20230526
  Receipt Date: 20230526
  Transmission Date: 20230721
  Serious: No
  Sender: FDA-Public Use
  Company Number: US-SA-SAC20230526000205

PATIENT
  Age: 55 Year
  Sex: Female
  Weight: 63.5 kg

DRUGS (5)
  1. DUPIXENT [Suspect]
     Active Substance: DUPILUMAB
     Indication: Dermatitis atopic
     Dosage: 600 MG, 1X
     Route: 058
     Dates: start: 20230418, end: 20230418
  2. DUPIXENT [Suspect]
     Active Substance: DUPILUMAB
     Dosage: 300 MG, QOW
     Route: 058
  3. ATORVASTATIN [Concomitant]
     Active Substance: ATORVASTATIN
     Dosage: 29MAR2023DOSE
     Route: 048
     Dates: start: 20230329
  4. BETAMETHASONE [Concomitant]
     Active Substance: BETAMETHASONE
     Dosage: 29MAR2023DOSE
     Dates: start: 20230329
  5. CARVEDILOL [Concomitant]
     Active Substance: CARVEDILOL
     Dosage: 29MAR2023DOSE
     Route: 048
     Dates: start: 20230329

REACTIONS (1)
  - Incorrect dose administered [Unknown]

NARRATIVE: CASE EVENT DATE: 20230505
